FAERS Safety Report 17454226 (Version 1)
Quarter: 2020Q1

REPORT INFORMATION
  Report Type: Spontaneous
  Country: US (occurrence: US)
  Receive Date: 20200211
  Receipt Date: 20200211
  Transmission Date: 20200409
  Serious: Yes (Life-Threatening, Hospitalization, Disabling)
  Sender: FDA-Public Use
  Company Number: None

PATIENT
  Age: 51 Year
  Sex: Female
  Weight: 88.45 kg

DRUGS (1)
  1. DRUG NOT SPECIFIED [Suspect]
     Active Substance: UNSPECIFIED INGREDIENT
     Indication: GASTROOESOPHAGEAL REFLUX DISEASE
     Dosage: ?          QUANTITY:2 PILLS;?
     Route: 048

REACTIONS (8)
  - Nausea [None]
  - Gait inability [None]
  - Weight decreased [None]
  - Sepsis [None]
  - Kidney infection [None]
  - Vomiting [None]
  - Asthenia [None]
  - Duodenal stenosis [None]

NARRATIVE: CASE EVENT DATE: 20190321
